FAERS Safety Report 5586205-5 (Version None)
Quarter: 2007Q4

REPORT INFORMATION
  Report Type: 
  Country: None (occurrence: None)
  Receive Date: 20071203
  Receipt Date: 20061013
  Transmission Date: 20080405
  Serious: Yes (Other)
  Sender: FDA-Public Use
  Company Number: 2006126047

PATIENT

DRUGS (1)
  1. ZYVOX [Suspect]
     Dosage: 1200 MG (600 MG,2 IN 1 D)

REACTIONS (1)
  - NEUROPATHY PERIPHERAL [None]
